FAERS Safety Report 14537961 (Version 1)
Quarter: 2018Q1

REPORT INFORMATION
  Report Type: Report from Study
  Country: JP (occurrence: JP)
  Receive Date: 20180216
  Receipt Date: 20180216
  Transmission Date: 20180509
  Serious: Yes (Other)
  Sender: FDA-Public Use
  Company Number: JP-AMGEN-JPNCT2016185960

PATIENT
  Sex: Male
  Weight: 84 kg

DRUGS (14)
  1. OXALIPLATIN. [Concomitant]
     Active Substance: OXALIPLATIN
     Indication: RECTAL CANCER
     Dosage: 160 MG, Q2WEEKS
     Route: 041
     Dates: start: 20161104, end: 20161216
  2. FLUOROURACIL. [Concomitant]
     Active Substance: FLUOROURACIL
     Dosage: 4550 MG, Q2WEEKS
     Route: 041
     Dates: start: 20161104, end: 20161216
  3. FLUOROURACIL. [Concomitant]
     Active Substance: FLUOROURACIL
     Dosage: 750 MG, Q2WK
     Route: 040
     Dates: start: 20170113, end: 20171006
  4. PANITUMUMAB [Suspect]
     Active Substance: PANITUMUMAB
     Indication: RECTAL CANCER
     Dosage: 500 MG, Q2WK
     Route: 041
     Dates: start: 20161104, end: 20161216
  5. PANITUMUMAB [Suspect]
     Active Substance: PANITUMUMAB
     Dosage: 4.8 MG, Q2WK
     Route: 041
     Dates: start: 20170113, end: 20170224
  6. CALCIUM LEVOFOLINATE [Concomitant]
     Active Substance: LEVOLEUCOVORIN CALCIUM
     Dosage: UNK, Q2WEEKS
     Route: 041
     Dates: start: 20170512, end: 20171006
  7. FLUOROURACIL. [Concomitant]
     Active Substance: FLUOROURACIL
     Indication: RECTAL CANCER
     Dosage: 750 MG, Q2WEEKS
     Route: 040
     Dates: start: 20161104, end: 20161216
  8. PANITUMUMAB [Suspect]
     Active Substance: PANITUMUMAB
     Dosage: 4.8 MG, Q2WK
     Route: 041
     Dates: start: 20170324, end: 20170324
  9. OXALIPLATIN. [Concomitant]
     Active Substance: OXALIPLATIN
     Dosage: 160 MG, Q2WEEKS
     Route: 041
     Dates: start: 20170113, end: 20170421
  10. FLUOROURACIL. [Concomitant]
     Active Substance: FLUOROURACIL
     Dosage: 4550 MG, Q2WEEKS
     Route: 041
     Dates: start: 20170113, end: 20171006
  11. CALCIUM LEVOFOLINATE [Concomitant]
     Active Substance: LEVOLEUCOVORIN CALCIUM
     Indication: RECTAL CANCER
     Dosage: 375 MG, Q2WEEKS
     Route: 041
     Dates: start: 20161104, end: 20161216
  12. PANITUMUMAB [Suspect]
     Active Substance: PANITUMUMAB
     Dosage: 3.6 MG, Q2WK
     Route: 041
     Dates: start: 20170407, end: 20170407
  13. FLUOROURACIL. [Concomitant]
     Active Substance: FLUOROURACIL
     Dosage: UNK UNK, Q2WK
     Route: 042
     Dates: start: 20171117
  14. CALCIUM LEVOFOLINATE [Concomitant]
     Active Substance: LEVOLEUCOVORIN CALCIUM
     Dosage: 375 MG, Q2WEEKS
     Route: 041
     Dates: start: 20170113, end: 20170421

REACTIONS (12)
  - Embolism [Not Recovered/Not Resolved]
  - Pulmonary embolism [Not Recovered/Not Resolved]
  - White blood cell count decreased [Recovered/Resolved]
  - Dermatitis acneiform [Recovered/Resolved]
  - Peripheral sensory neuropathy [Not Recovered/Not Resolved]
  - Alanine aminotransferase increased [Recovered/Resolved]
  - Dry skin [Recovered/Resolved]
  - Neutrophil count decreased [Recovered/Resolved]
  - Platelet count decreased [Recovered/Resolved]
  - Stomatitis [Not Recovered/Not Resolved]
  - Hypomagnesaemia [Recovered/Resolved]
  - Nausea [Recovered/Resolved]
